FAERS Safety Report 8328061-8 (Version None)
Quarter: 2012Q2

REPORT INFORMATION
  Report Type: 
  Country: None (occurrence: None)
  Receive Date: 20120502
  Receipt Date: 20120425
  Transmission Date: 20120825
  Serious: Yes (Other)
  Sender: FDA-Public Use
  Company Number: PHFR2012GB001987

PATIENT
  Sex: Male

DRUGS (1)
  1. CLOZARIL [Suspect]
     Route: 048
     Dates: start: 19990806

REACTIONS (5)
  - URINARY TRACT DISORDER [None]
  - DEEP VEIN THROMBOSIS [None]
  - EOSINOPHIL COUNT INCREASED [None]
  - HAEMATURIA [None]
  - RECTAL HAEMORRHAGE [None]
